FAERS Safety Report 12134049 (Version 2)
Quarter: 2016Q1

REPORT INFORMATION
  Report Type: Spontaneous
  Country: US (occurrence: US)
  Receive Date: 20160301
  Receipt Date: 20160310
  Transmission Date: 20160526
  Serious: No
  Sender: FDA-Public Use
  Company Number: US-ASTRAZENECA-2016SE21502

PATIENT
  Sex: Female
  Weight: 68 kg

DRUGS (8)
  1. NEXIUM [Suspect]
     Active Substance: ESOMEPRAZOLE MAGNESIUM
     Indication: GASTROOESOPHAGEAL REFLUX DISEASE
     Route: 048
  2. NEXIUM [Suspect]
     Active Substance: ESOMEPRAZOLE MAGNESIUM
     Indication: OESOPHAGEAL IRRITATION
     Route: 048
  3. NEXIUM [Suspect]
     Active Substance: ESOMEPRAZOLE MAGNESIUM
     Indication: OESOPHAGEAL IRRITATION
     Dosage: GENERIC
     Route: 048
  4. OTC 24 HR [Suspect]
     Active Substance: UNSPECIFIED INGREDIENT
     Route: 048
  5. OTC 24 HR [Suspect]
     Active Substance: UNSPECIFIED INGREDIENT
     Route: 048
  6. PREVACID [Concomitant]
     Active Substance: LANSOPRAZOLE
  7. PRILOSEC [Concomitant]
     Active Substance: OMEPRAZOLE MAGNESIUM
  8. NEXIUM [Suspect]
     Active Substance: ESOMEPRAZOLE MAGNESIUM
     Indication: GASTROOESOPHAGEAL REFLUX DISEASE
     Dosage: GENERIC
     Route: 048

REACTIONS (5)
  - Malaise [Unknown]
  - Drug dose omission [Unknown]
  - Drug ineffective [Unknown]
  - Throat irritation [Unknown]
  - Eating disorder [Unknown]
